FAERS Safety Report 7653022-1 (Version None)
Quarter: 2011Q3

REPORT INFORMATION
  Report Type: 
  Country: None (occurrence: None)
  Receive Date: 20110803
  Receipt Date: 20110719
  Transmission Date: 20111222
  Serious: Yes (Other)
  Sender: FDA-Public Use
  Company Number: US-ROCHE-791920

PATIENT
  Sex: Female
  Weight: 56.9 kg

DRUGS (13)
  1. TYKERB [Suspect]
     Dosage: DOSE REDUCED
     Route: 048
  2. DOMPERIDONE [Concomitant]
  3. CYANOCOBALAMIN [Concomitant]
  4. ZOLEDRONIC ACID [Concomitant]
  5. TYKERB [Suspect]
     Indication: BREAST CANCER
     Route: 048
     Dates: start: 20100601
  6. CALCIUM ACETATE [Concomitant]
     Dosage: DRUG : CALCIUM SALT
  7. PYRIDOXINE HCL [Concomitant]
  8. TYKERB [Suspect]
     Dosage: DRUG RE-STARTED IN : JUNE OR JULY 2010
     Route: 048
  9. HERCEPTIN [Concomitant]
  10. NEXIUM [Concomitant]
  11. METAMUCIL-2 [Concomitant]
  12. MAGNESIUM SALT [Concomitant]
  13. XELODA [Suspect]
     Indication: BREAST CANCER
     Route: 065
     Dates: start: 20100601, end: 20100601

REACTIONS (15)
  - ONYCHALGIA [None]
  - ABDOMINAL PAIN UPPER [None]
  - NAIL DISCOLOURATION [None]
  - DIARRHOEA [None]
  - VOMITING [None]
  - NAUSEA [None]
  - ABDOMINAL DISCOMFORT [None]
  - GASTROINTESTINAL BACTERIAL INFECTION [None]
  - PAIN IN EXTREMITY [None]
  - ONYCHOMADESIS [None]
  - GASTROINTESTINAL TOXICITY [None]
  - ABDOMINAL DISTENSION [None]
  - METASTATIC NEOPLASM [None]
  - DISEASE PROGRESSION [None]
  - DRUG INEFFECTIVE [None]
